FAERS Safety Report 8849283 (Version 3)
Quarter: 2013Q1

REPORT INFORMATION
  Report Type: Spontaneous
  Country: JP (occurrence: JP)
  Receive Date: 20121019
  Receipt Date: 20130117
  Transmission Date: 20140127
  Serious: Yes (Life-Threatening, Hospitalization, Disabling)
  Sender: FDA-Public Use
  Company Number: JP-BAYER-2012-107198

PATIENT
  Age: 67 Year
  Sex: Male
  Weight: 64 kg

DRUGS (13)
  1. NEXAVAR [Suspect]
     Indication: RENAL CELL CARCINOMA
     Dosage: 400 MG, BID
     Route: 048
     Dates: start: 20120703, end: 20120717
  2. NEXAVAR [Suspect]
     Indication: RENAL CELL CARCINOMA
     Dosage: 200 MG, BID
     Route: 048
     Dates: start: 20120718, end: 20120911
  3. ALCENOL [Concomitant]
     Indication: HYPERTENSION
     Dosage: DAILY DOSE 50 MG
     Route: 048
  4. AMLODIPINE [Concomitant]
     Indication: HYPERTENSION
     Dosage: DAILY DOSE 5 MG
     Route: 048
  5. DIOVAN [Concomitant]
     Indication: HYPERTENSION
     Dosage: DAILY DOSE 160 MG
     Route: 048
  6. WARFARIN [Concomitant]
     Indication: ATRIAL FIBRILLATION
     Dosage: DAILY DOSE 5 MG
     Route: 048
  7. FAMOGAST [Concomitant]
     Indication: GASTRITIS
     Dosage: DAILY DOSE 40 MG
     Route: 048
  8. FAMOGAST [Concomitant]
     Indication: GASTRITIS
  9. DEZOLAM [Concomitant]
     Dosage: UNK
     Route: 048
  10. ROHYPNOL [Concomitant]
  11. FERROMIA [Concomitant]
     Dosage: UNK
     Route: 048
  12. MYSLEE [Concomitant]
     Indication: INSOMNIA
     Dosage: DAILY DOSE 5 MG
     Route: 048
  13. HALCION [Concomitant]
     Indication: INSOMNIA
     Dosage: DAILY DOSE 0.25 MG
     Route: 048

REACTIONS (4)
  - Gastrointestinal necrosis [Recovered/Resolved with Sequelae]
  - Intestinal ischaemia [Recovered/Resolved with Sequelae]
  - Impaired healing [None]
  - Postoperative wound infection [None]
